FAERS Safety Report 7629434-9 (Version None)
Quarter: 2011Q3

REPORT INFORMATION
  Report Type: 
  Country: None (occurrence: None)
  Receive Date: 20110722
  Receipt Date: 20110712
  Transmission Date: 20111222
  Serious: Yes (Other)
  Sender: FDA-Public Use
  Company Number: BR-JNJFOC-20110706344

PATIENT
  Age: 50 Year
  Sex: Male

DRUGS (2)
  1. REMICADE [Suspect]
     Route: 042
     Dates: start: 20100810
  2. REMICADE [Suspect]
     Indication: RHEUMATOID ARTHRITIS
     Route: 042
     Dates: start: 20110612

REACTIONS (5)
  - FACE OEDEMA [None]
  - PHARYNGEAL OEDEMA [None]
  - INCORRECT DRUG ADMINISTRATION RATE [None]
  - BLOOD PRESSURE INCREASED [None]
  - INFUSION RELATED REACTION [None]
